FAERS Safety Report 16115196 (Version 3)
Quarter: 2019Q2

REPORT INFORMATION
  Report Type: Spontaneous
  Country: AR (occurrence: AR)
  Receive Date: 20190325
  Receipt Date: 20190415
  Transmission Date: 20190711
  Serious: Yes (Other)
  Sender: FDA-Public Use
  Company Number: AR-ALLERGAN-1907581US

PATIENT
  Sex: Female
  Weight: 44 kg

DRUGS (6)
  1. ANTIBIOTICS [Concomitant]
     Active Substance: UNSPECIFIED INGREDIENT
     Indication: PNEUMONIA
     Route: 065
  2. BOTOX [Suspect]
     Active Substance: ONABOTULINUMTOXINA
     Indication: MUSCLE SPASTICITY
  3. BOTOX [Suspect]
     Active Substance: ONABOTULINUMTOXINA
     Indication: BRUXISM
     Dosage: ACTUAL: 40U MASSETER, 10U SALIVARY GLANDS, 250U UPPER LIMBS, 240U LOWER LIMBS
     Route: 030
     Dates: start: 20190128, end: 20190128
  4. CORTICOSTEROIDS [Concomitant]
     Active Substance: CORTICOSTEROID NOS
     Indication: PNEUMONIA
     Route: 065
  5. BOTOX [Suspect]
     Active Substance: ONABOTULINUMTOXINA
     Indication: DIPLEGIA
     Dosage: ACTUAL: 40U TO ANTERIOR BRACHIAL MUSCLE,80U TO HAMSTRING,100U TO ADDUCTOR,80U TO ANTERIOR RECTUS,10U
     Route: 030
     Dates: start: 20190213, end: 20190213
  6. BOTOX [Suspect]
     Active Substance: ONABOTULINUMTOXINA
     Indication: SALIVARY HYPERSECRETION

REACTIONS (6)
  - Muscular weakness [Unknown]
  - Overdose [Unknown]
  - Dysphagia [Unknown]
  - Drug ineffective for unapproved indication [Unknown]
  - Off label use [Unknown]
  - Pneumonia aspiration [Unknown]

NARRATIVE: CASE EVENT DATE: 20190213
